FAERS Safety Report 6793394-3 (Version None)
Quarter: 2010Q2

REPORT INFORMATION
  Report Type: 
  Country: None (occurrence: None)
  Receive Date: 20100624
  Receipt Date: 20100317
  Transmission Date: 20101027
  Serious: No
  Sender: FDA-Public Use
  Company Number: US-MYLANLABS-2010S1001632

PATIENT
  Age: 45 Year
  Sex: Male
  Weight: 86.18 kg

DRUGS (8)
  1. CLOZAPINE [Suspect]
     Indication: SCHIZOPHRENIA
     Route: 048
     Dates: end: 20100201
  2. CLOZAPINE [Suspect]
     Indication: BIPOLAR DISORDER
     Route: 048
     Dates: end: 20100201
  3. CLOZAPINE [Suspect]
     Route: 048
     Dates: end: 20100201
  4. CLOZAPINE [Suspect]
     Route: 048
     Dates: end: 20100201
  5. LIPITOR [Concomitant]
     Dates: start: 20070101
  6. ULTRAM [Concomitant]
     Dates: start: 20080101
  7. ATIVAN [Concomitant]
  8. DULCOLAX [Concomitant]

REACTIONS (2)
  - ABDOMINAL DISCOMFORT [None]
  - ABDOMINAL PAIN [None]
